FAERS Safety Report 25158359 (Version 1)
Quarter: 2025Q2

REPORT INFORMATION
  Report Type: Spontaneous
  Country: FR (occurrence: FR)
  Receive Date: 20250404
  Receipt Date: 20250404
  Transmission Date: 20250716
  Serious: Yes (Life-Threatening, Other)
  Sender: CIPLA
  Company Number: FR-AFSSAPS-GR2025000429

PATIENT

DRUGS (1)
  1. RIVAROXABAN [Suspect]
     Active Substance: RIVAROXABAN
     Indication: Atrial fibrillation
     Dosage: 20 MILLIGRAM, QD
     Route: 048
     Dates: start: 20210301, end: 20250304

REACTIONS (2)
  - Cerebral infarction [Recovered/Resolved with Sequelae]
  - Product prescribing error [Recovered/Resolved with Sequelae]

NARRATIVE: CASE EVENT DATE: 20250307
